FAERS Safety Report 12419195 (Version 2)
Quarter: 2016Q2

REPORT INFORMATION
  Report Type: Spontaneous
  Country: US (occurrence: US)
  Receive Date: 20160531
  Receipt Date: 20160616
  Transmission Date: 20160815
  Serious: No
  Sender: FDA-Public Use
  Company Number: US-PFIZER INC-2016251305

PATIENT
  Age: 61 Year
  Sex: Female

DRUGS (4)
  1. PHENOBARBITAL. [Concomitant]
     Active Substance: PHENOBARBITAL
     Indication: SEIZURE
     Dosage: 64 MG, 2X/DAY
     Dates: start: 1968
  2. PHENYTOIN SODIUM. [Suspect]
     Active Substance: PHENYTOIN SODIUM
     Indication: SEIZURE
     Dosage: 400 MG, DAILY
  3. PHENYTOIN SODIUM. [Suspect]
     Active Substance: PHENYTOIN SODIUM
     Dosage: UNK, DAILY (100MG 3-4 TIMES DAILY)
     Route: 048
     Dates: start: 1968
  4. ZYRTEC [Concomitant]
     Active Substance: CETIRIZINE HYDROCHLORIDE
     Indication: HYPERSENSITIVITY
     Dosage: UNK UNK, 1X/DAY

REACTIONS (3)
  - Tremor [Recovered/Resolved]
  - Anticonvulsant drug level abnormal [Not Recovered/Not Resolved]
  - Insomnia [Not Recovered/Not Resolved]
